FAERS Safety Report 9062972 (Version 1)
Quarter: 2013Q1

REPORT INFORMATION
  Report Type: Report from Study
  Country: US (occurrence: US)
  Receive Date: 20130131
  Receipt Date: 20130131
  Transmission Date: 20140127
  Serious: No
  Sender: FDA-Public Use
  Company Number: US-ABBOTT-12P-163-0986212-00

PATIENT
  Age: 41 None
  Sex: Female
  Weight: 78.54 kg

DRUGS (7)
  1. HUMIRA [Suspect]
     Indication: COLITIS ULCERATIVE
     Dates: end: 20121110
  2. HUMIRA [Suspect]
     Indication: CROHN^S DISEASE
  3. LEFLUNOMIDE [Concomitant]
     Indication: RHEUMATOID ARTHRITIS
     Dates: start: 20120616
  4. FOLIC ACID [Concomitant]
     Indication: RHEUMATOID ARTHRITIS
     Dosage: DAILY
     Dates: start: 20120616
  5. IBUPROFEN [Concomitant]
     Indication: PRODUCT USED FOR UNKNOWN INDICATION
  6. COMBIGAN [Concomitant]
     Indication: GLAUCOMA
     Dosage: 1 DDROP EACH EYE
     Route: 047
  7. LUMIGAN [Concomitant]
     Indication: PRODUCT USED FOR UNKNOWN INDICATION
     Dosage: 1 DROP EACH EYE AT HOUR OF SLEEP
     Route: 047

REACTIONS (8)
  - Joint stiffness [Unknown]
  - Papule [Not Recovered/Not Resolved]
  - Blister [Unknown]
  - Chest discomfort [Unknown]
  - Local swelling [Unknown]
  - Nasopharyngitis [Unknown]
  - Rash [Unknown]
  - Folliculitis [Unknown]
